FAERS Safety Report 9246685 (Version 1)
Quarter: 2013Q2

REPORT INFORMATION
  Report Type: Spontaneous
  Country: US (occurrence: US)
  Receive Date: 20130422
  Receipt Date: 20130422
  Transmission Date: 20140414
  Serious: Yes (Other)
  Sender: FDA-Public Use
  Company Number: US-PFIZER INC-2013125354

PATIENT
  Age: 51 Year
  Sex: Female
  Weight: 68.03 kg

DRUGS (3)
  1. LYRICA [Suspect]
     Indication: NERVE INJURY
     Dosage: 300 MG, 2X/DAY
     Dates: start: 201301, end: 201304
  2. LISINOPRIL [Suspect]
     Indication: HYPERTENSION
     Dosage: 40 MG, 1X/DAY
  3. DYAZIDE [Suspect]
     Indication: HYPERTENSION
     Dosage: 37.5/25 MG, 1X/DAY

REACTIONS (3)
  - Oedema peripheral [Not Recovered/Not Resolved]
  - Chest pain [Unknown]
  - Drug ineffective [Unknown]
